FAERS Safety Report 7040428-7 (Version None)
Quarter: 2010Q4

REPORT INFORMATION
  Report Type: 
  Country: None (occurrence: None)
  Receive Date: 20101012
  Receipt Date: 20101008
  Transmission Date: 20110411
  Serious: Yes (Other)
  Sender: FDA-Public Use
  Company Number: GB-MERCK-1010GBR00035

PATIENT
  Age: 60 Year
  Sex: Male

DRUGS (2)
  1. JANUVIA [Suspect]
     Indication: TYPE 2 DIABETES MELLITUS
     Route: 048
     Dates: start: 20100621, end: 20100710
  2. METFORMIN [Concomitant]
     Route: 065

REACTIONS (2)
  - BLISTER [None]
  - OEDEMA PERIPHERAL [None]
